FAERS Safety Report 8616168 (Version 2)
Quarter: 2014Q3

REPORT INFORMATION
  Report Type: Report from Study
  Country: AU (occurrence: AU)
  Receive Date: 20120614
  Receipt Date: 20140903
  Transmission Date: 20150326
  Serious: Yes (Hospitalization)
  Sender: FDA-Public Use
  Company Number: AU-ROCHE-1071771

PATIENT
  Age: 40 Year
  Sex: Male

DRUGS (20)
  1. PARACETAMOL [Concomitant]
     Active Substance: ACETAMINOPHEN
     Route: 048
  2. DEXAMETHASONE. [Concomitant]
     Active Substance: DEXAMETHASONE
     Dosage: REDUCED DOSE
     Route: 065
     Dates: start: 20120229, end: 20120325
  3. CARBOPLATIN. [Suspect]
     Active Substance: CARBOPLATIN
     Indication: GLIOBLASTOMA MULTIFORME
     Dosage: DOSE OF CARBOPLATIN WAS DELAYED DUE TO HAEMATOLOGIC TOXICITY
     Route: 065
     Dates: start: 20120417
  4. FUNGILIN [Concomitant]
     Active Substance: AMPHOTERICIN B
     Indication: PROPHYLAXIS
     Route: 048
  5. CELECOXIB. [Concomitant]
     Active Substance: CELECOXIB
     Route: 048
  6. GABAPENTIN. [Concomitant]
     Active Substance: GABAPENTIN
     Route: 048
  7. LOVAN [Concomitant]
     Active Substance: FLUOXETINE HYDROCHLORIDE
     Route: 048
     Dates: start: 2002
  8. NILSTAT (AUSTRALIA) [Concomitant]
     Dosage: 2 DROPS
     Route: 048
  9. GABAPENTIN. [Concomitant]
     Active Substance: GABAPENTIN
     Route: 048
  10. DEXAMETHASONE. [Concomitant]
     Active Substance: DEXAMETHASONE
     Dosage: DOSE REDUCTION
     Route: 065
     Dates: start: 20120326, end: 20120401
  11. VITAMIN C [Concomitant]
     Active Substance: ASCORBIC ACID
     Route: 048
  12. DEXAMETHASONE. [Concomitant]
     Active Substance: DEXAMETHASONE
     Dosage: DISCONTINUED
     Route: 065
     Dates: start: 20120402, end: 20120420
  13. LOSEC [Concomitant]
     Active Substance: OMEPRAZOLE
     Route: 048
     Dates: start: 20111107
  14. METHADONE [Concomitant]
     Active Substance: METHADONE HYDROCHLORIDE
     Indication: PAIN
     Route: 048
     Dates: start: 20120302
  15. DEXAMETHASONE. [Concomitant]
     Active Substance: DEXAMETHASONE
     Route: 065
     Dates: end: 20120228
  16. NILSTAT (AUSTRALIA) [Concomitant]
     Dosage: 2 DROPS
     Route: 048
  17. FLUOXETINE [Concomitant]
     Active Substance: FLUOXETINE\FLUOXETINE HYDROCHLORIDE
     Route: 048
  18. BEVACIZUMAB [Suspect]
     Active Substance: BEVACIZUMAB
     Indication: GLIOBLASTOMA MULTIFORME
     Route: 065
     Dates: start: 20120417
  19. KENALOG (AUSTRALIA) [Concomitant]
     Dosage: 1 APPLICATION
     Route: 048
  20. METOCLOPRAMIDE. [Concomitant]
     Active Substance: METOCLOPRAMIDE
     Route: 048

REACTIONS (1)
  - Pyrexia [Not Recovered/Not Resolved]

NARRATIVE: CASE EVENT DATE: 20120428
